FAERS Safety Report 14489757 (Version 2)
Quarter: 2018Q1

REPORT INFORMATION
  Report Type: Report from Study
  Country: BR (occurrence: BR)
  Receive Date: 20180205
  Receipt Date: 20180222
  Transmission Date: 20180509
  Serious: Yes (Hospitalization, Other)
  Sender: FDA-Public Use
  Company Number: BR-ALEXION-A201712407

PATIENT
  Age: 65 Year
  Sex: Male
  Weight: 80 kg

DRUGS (4)
  1. SOLIRIS [Suspect]
     Active Substance: ECULIZUMAB
     Indication: PAROXYSMAL NOCTURNAL HAEMOGLOBINURIA
     Dosage: 600 MG, QW
     Route: 042
     Dates: start: 20140915, end: 20141006
  2. SOLIRIS [Suspect]
     Active Substance: ECULIZUMAB
     Dosage: 1200 MG, Q2W
     Route: 042
     Dates: start: 20151102, end: 20170818
  3. SOLIRIS [Suspect]
     Active Substance: ECULIZUMAB
     Dosage: 900 MG, QW
     Route: 042
     Dates: start: 20141013
  4. SOLIRIS [Suspect]
     Active Substance: ECULIZUMAB
     Dosage: 1200 MG, UNK
     Route: 065
     Dates: end: 20170815

REACTIONS (21)
  - Renal disorder [Unknown]
  - Anaemia [Not Recovered/Not Resolved]
  - Infection [Unknown]
  - Asthenia [Unknown]
  - Gait disturbance [Unknown]
  - Blood creatinine increased [Unknown]
  - Urinary tract infection [Unknown]
  - Diarrhoea [Recovered/Resolved]
  - Prostatomegaly [Unknown]
  - Immobile [Unknown]
  - Dysphagia [Unknown]
  - Oedema [Unknown]
  - Condition aggravated [Unknown]
  - Stress [Unknown]
  - Swelling [Unknown]
  - Inappropriate schedule of drug administration [Unknown]
  - Vomiting [Recovered/Resolved]
  - Haemoglobin decreased [Unknown]
  - Blood lactate dehydrogenase increased [Not Recovered/Not Resolved]
  - Urinary retention [Recovered/Resolved]
  - Nausea [Unknown]

NARRATIVE: CASE EVENT DATE: 201606
